FAERS Safety Report 8324954-6 (Version None)
Quarter: 2012Q2

REPORT INFORMATION
  Report Type: 
  Country: None (occurrence: None)
  Receive Date: 20120427
  Receipt Date: 20120417
  Transmission Date: 20120825
  Serious: Yes (Death, Hospitalization)
  Sender: FDA-Public Use
  Company Number: DKLU1078514

PATIENT
  Age: 4 Year
  Sex: Male

DRUGS (10)
  1. VINCRISTINE [Suspect]
     Indication: APLASIA PURE RED CELL
     Dosage: 1 IN 1 WK
  2. VINCRISTINE [Suspect]
     Indication: T-CELL TYPE ACUTE LEUKAEMIA
     Dosage: 1 IN 1 WK
  3. PREDNISONE TAB [Suspect]
     Indication: APLASIA PURE RED CELL
     Dosage: ORAL
     Route: 048
  4. PREDNISONE TAB [Suspect]
     Indication: T-CELL TYPE ACUTE LEUKAEMIA
     Dosage: ORAL
     Route: 048
  5. DEXAMETHASONE [Suspect]
     Indication: T-CELL TYPE ACUTE LEUKAEMIA
     Dosage: 1 IN 1 D
  6. DEXAMETHASONE [Suspect]
     Indication: APLASIA PURE RED CELL
     Dosage: 1 IN 1 D
  7. ELSPAR [Suspect]
     Indication: APLASIA PURE RED CELL
     Dosage: 1 IN 2 D
  8. ELSPAR [Suspect]
     Indication: T-CELL TYPE ACUTE LEUKAEMIA
     Dosage: 1 IN 2 D
  9. DAUNORUBICIN HCL [Suspect]
     Indication: T-CELL TYPE ACUTE LEUKAEMIA
     Dosage: 1 IN 1 WK
  10. DAUNORUBICIN HCL [Suspect]
     Indication: APLASIA PURE RED CELL
     Dosage: 1 IN 1 WK

REACTIONS (8)
  - PLATELET COUNT DECREASED [None]
  - T-CELL TYPE ACUTE LEUKAEMIA [None]
  - ANAEMIA [None]
  - ASCITES [None]
  - HEPATOSPLENOMEGALY [None]
  - OEDEMA PERIPHERAL [None]
  - DISEASE PROGRESSION [None]
  - RESPIRATORY TRACT INFECTION [None]
